FAERS Safety Report 9733152 (Version 1)
Quarter: 2013Q4

REPORT INFORMATION
  Report Type: Spontaneous
  Country: FR (occurrence: FR)
  Receive Date: 20131205
  Receipt Date: 20131205
  Transmission Date: 20140711
  Serious: Yes (Other)
  Sender: FDA-Public Use
  Company Number: FR-AMGEN-FRASP2013084901

PATIENT
  Age: 67 Year
  Sex: Female

DRUGS (13)
  1. ENBREL [Suspect]
     Indication: PRODUCT USED FOR UNKNOWN INDICATION
     Dosage: 25 MG, 2X/WEEK
     Route: 058
     Dates: start: 201309, end: 201310
  2. ROCEPHINE [Interacting]
     Indication: SEPSIS
     Dosage: 1 G, DAILY
     Route: 042
     Dates: start: 20131022, end: 20131025
  3. LANSOPRAZOLE [Interacting]
     Indication: PRODUCT USED FOR UNKNOWN INDICATION
     Dosage: 30 MG, 1X/DAY
     Route: 048
  4. BISOPROLOL [Concomitant]
     Dosage: UNK
  5. COAPROVEL [Concomitant]
     Dosage: UNK
  6. ALDACTAZINE [Concomitant]
     Dosage: UNK
  7. SIMVASTATIN [Concomitant]
     Dosage: UNK
  8. LOPERAMIDE [Concomitant]
     Dosage: UNK
  9. DOMPERIDONE [Concomitant]
     Dosage: UNK
  10. LEVOTHYROX [Concomitant]
     Dosage: UNK
  11. PAROXETINE [Concomitant]
     Dosage: UNK
  12. TOPALGIC                           /00599202/ [Concomitant]
     Dosage: UNK
  13. PARACETAMOL [Concomitant]
     Dosage: UNK

REACTIONS (2)
  - Drug interaction [Recovered/Resolved]
  - Clostridium difficile colitis [Recovered/Resolved]
